FAERS Safety Report 12641343 (Version 2)
Quarter: 2016Q3

REPORT INFORMATION
  Report Type: Spontaneous
  Country: US (occurrence: US)
  Receive Date: 20160810
  Receipt Date: 20160823
  Transmission Date: 20161109
  Serious: No
  Sender: FDA-Public Use
  Company Number: US-PFIZER INC-2016370082

PATIENT
  Age: 62 Year
  Sex: Female
  Weight: 61 kg

DRUGS (1)
  1. ESTRING [Suspect]
     Active Substance: ESTRADIOL
     Indication: VAGINAL DISORDER
     Dosage: UNK
     Route: 067

REACTIONS (3)
  - Asthenia [Recovered/Resolved]
  - Drug intolerance [Unknown]
  - Breast tenderness [Recovering/Resolving]
